FAERS Safety Report 8141804-1 (Version None)
Quarter: 2012Q1

REPORT INFORMATION
  Report Type: 
  Country: None (occurrence: None)
  Receive Date: 20120216
  Receipt Date: 20120206
  Transmission Date: 20120608
  Serious: Yes (Death)
  Sender: FDA-Public Use
  Company Number: US-ELI_LILLY_AND_COMPANY-US201004005804

PATIENT
  Sex: Female
  Weight: 46 kg

DRUGS (16)
  1. DIPHENOXYLATE HCL + ATROPINE SULFATE [Concomitant]
  2. CELEXA [Concomitant]
  3. TRAMADOL HCL [Concomitant]
  4. VITAMIN D [Concomitant]
  5. LEXAPRO [Concomitant]
  6. FORTEO [Suspect]
     Dosage: 20 UG, QD
     Route: 058
  7. ANTIBIOTICS [Concomitant]
  8. PULMICORT-100 [Concomitant]
     Dosage: UNK, UNKNOWN
  9. POTASSIUM CHLORIDE [Concomitant]
  10. MULTI-VITAMIN [Concomitant]
     Dosage: UNK, UNKNOWN
  11. ACIDOPHILUS [Concomitant]
     Dosage: UNK, UNKNOWN
  12. FORTEO [Suspect]
     Indication: OSTEOPOROSIS POSTMENOPAUSAL
     Dosage: 20 UG, QD
     Route: 058
     Dates: start: 20100301
  13. ZOFRAN [Concomitant]
  14. IRON [Concomitant]
     Dosage: UNK, UNKNOWN
  15. OXYCONTIN [Concomitant]
  16. IMODIUM [Concomitant]

REACTIONS (2)
  - DEATH [None]
  - CALCINOSIS [None]
